FAERS Safety Report 6580572-1 (Version None)
Quarter: 2010Q1

REPORT INFORMATION
  Report Type: 
  Country: None (occurrence: None)
  Receive Date: 20100212
  Receipt Date: 20100205
  Transmission Date: 20100710
  Serious: Yes (Hospitalization)
  Sender: FDA-Public Use
  Company Number: FR-PFIZER INC-2010016141

PATIENT
  Age: 44 Year
  Sex: Female

DRUGS (2)
  1. MEDROL [Suspect]
     Indication: PREMEDICATION
     Dosage: 100 MG, 3X/DAY
     Route: 048
  2. TRASTUZUMAB [Suspect]
     Indication: BREAST CANCER
     Dosage: 720 MG, 1X/DAY
     Route: 042

REACTIONS (2)
  - FLUSHING [None]
  - VOMITING [None]
